FAERS Safety Report 6120074-X (Version None)
Quarter: 2009Q1

REPORT INFORMATION
  Report Type: 
  Country: None (occurrence: None)
  Receive Date: 20090311
  Receipt Date: 20090227
  Transmission Date: 20090719
  Serious: Yes (Hospitalization, Other)
  Sender: FDA-Public Use
  Company Number: WAES 0903USA00448

PATIENT
  Age: 76 Year
  Sex: Male

DRUGS (6)
  1. CAP VORINOSTAT [Suspect]
     Indication: MALIGNANT MELANOMA
     Dosage: 400 MG/DAILY PO
     Route: 048
     Dates: start: 20090106, end: 20090117
  2. VELCADE [Suspect]
     Indication: MALIGNANT MELANOMA
     Dosage: 2.6 MG/1X IV
     Route: 042
     Dates: start: 20090116, end: 20090116
  3. MEDROL [Concomitant]
  4. NEURONTIN [Concomitant]
  5. REPAGLINIDE [Concomitant]
  6. REDOMEX [Concomitant]

REACTIONS (1)
  - PNEUMONIA [None]
